FAERS Safety Report 4708433-0 (Version None)
Quarter: 2005Q3

REPORT INFORMATION
  Report Type: 
  Country: None (occurrence: None)
  Receive Date: 20050705
  Receipt Date: 20050627
  Transmission Date: 20060218
  Serious: Yes (Death, Hospitalization)
  Sender: FDA-Public Use
  Company Number: GBWYE776127JUN05

PATIENT
  Sex: Male

DRUGS (2)
  1. RAPAMUNE [Suspect]
  2. MYCOPHENOLATE MOFETIL [Concomitant]

REACTIONS (3)
  - C-REACTIVE PROTEIN INCREASED [None]
  - CARDIAC ARREST [None]
  - MALAISE [None]
